FAERS Safety Report 8858617 (Version 3)
Quarter: 2013Q2

REPORT INFORMATION
  Report Type: Spontaneous
  Country: JP (occurrence: JP)
  Receive Date: 20121024
  Receipt Date: 20130416
  Transmission Date: 20140414
  Serious: Yes (Other)
  Sender: FDA-Public Use
  Company Number: JP-PFIZER INC-2012264370

PATIENT
  Age: 60 Year
  Sex: Female
  Weight: 48 kg

DRUGS (9)
  1. LYRICA [Suspect]
     Indication: ANALGESIC THERAPY
     Dosage: 75 MG, 3X/DAY
     Route: 048
     Dates: start: 20120603, end: 20121002
  2. DAISAIKOTO [Concomitant]
     Dosage: UNK
     Route: 048
     Dates: start: 201206, end: 20121002
  3. MAGMITT [Concomitant]
     Indication: CONSTIPATION
     Dosage: 1000 MG, 3X/DAY
     Route: 048
     Dates: start: 200202
  4. PARIET [Concomitant]
     Indication: GASTRIC ULCER
     Dosage: 10 MG, 1X/DAY
     Route: 048
     Dates: start: 201201
  5. GASMOTIN [Concomitant]
     Indication: ABDOMINAL PAIN
     Dosage: 5 MG, 3X/DAY
     Route: 048
     Dates: start: 200705, end: 20121002
  6. EDIROL [Concomitant]
     Indication: OSTEOPOROSIS
     Dosage: 0.5 MG, 1X/DAY
     Route: 048
     Dates: start: 201201
  7. BENET [Concomitant]
     Indication: OSTEOPOROSIS
     Dosage: 17.5 MG, WEEKLY
     Route: 048
     Dates: start: 201201
  8. MICOMBI COMBINATION [Concomitant]
     Indication: HYPERTENSION
     Dosage: UNK
     Route: 048
     Dates: start: 201204
  9. CERCINE [Concomitant]
     Indication: HEADACHE
     Dosage: 12 MG, AS NEEDED
     Route: 048
     Dates: start: 201204, end: 20121002

REACTIONS (1)
  - Pneumonia [Recovering/Resolving]
